FAERS Safety Report 25807193 (Version 1)
Quarter: 2025Q3

REPORT INFORMATION
  Report Type: Spontaneous
  Country: US (occurrence: None)
  Receive Date: 20250915
  Receipt Date: 20250915
  Transmission Date: 20251021
  Serious: Yes (Other)
  Sender: FDA-CTU
  Company Number: None

PATIENT
  Age: 66 Year
  Sex: Female

DRUGS (8)
  1. BOTOX [Suspect]
     Active Substance: ONABOTULINUMTOXINA
     Indication: Migraine
     Route: 030
     Dates: start: 20241016, end: 20250915
  2. qulipta 60 mg tablets [Concomitant]
     Dates: start: 20241120
  3. BIOTIN 1000MCG TABLETS [Concomitant]
  4. NORTRIPTYLINE 10MG CAPSULES [Concomitant]
  5. RIZATRIPTAN ODT 10MG TABLETS [Concomitant]
  6. VITAMIN B-1 100MG TABLETS [Concomitant]
  7. VITAMIN B-12 100MCG TABLETS [Concomitant]
  8. VITAMIN D 400IU TABLETS [Concomitant]

REACTIONS (2)
  - Myasthenia gravis [None]
  - Therapy cessation [None]
